FAERS Safety Report 16153470 (Version 2)
Quarter: 2019Q2

REPORT INFORMATION
  Report Type: Spontaneous
  Country: IT (occurrence: IT)
  Receive Date: 20190403
  Receipt Date: 20190418
  Transmission Date: 20190711
  Serious: Yes (Other)
  Sender: FDA-Public Use
  Company Number: IT-AUROBINDO-AUR-APL-2019-017112

PATIENT

DRUGS (1)
  1. SEVELAMER [Suspect]
     Active Substance: SEVELAMER
     Indication: HYPERPHOSPHATAEMIA
     Dosage: UNK
     Route: 065
     Dates: start: 20190201, end: 20190311

REACTIONS (4)
  - Inadequate haemodialysis [Unknown]
  - Chelation therapy [Unknown]
  - Therapy non-responder [Unknown]
  - Blood phosphorus [Unknown]

NARRATIVE: CASE EVENT DATE: 20190201
